FAERS Safety Report 15058966 (Version 1)
Quarter: 2018Q2

REPORT INFORMATION
  Report Type: Report from Study
  Country: FR (occurrence: FR)
  Receive Date: 20180625
  Receipt Date: 20180625
  Transmission Date: 20180711
  Serious: Yes (Hospitalization)
  Sender: FDA-Public Use
  Company Number: FR-VELOXIS PHARMACEUTICALS, INC.-2018VELFR0926

PATIENT
  Age: 78 Year
  Sex: Female
  Weight: 51 kg

DRUGS (20)
  1. ROVALCYTE [Concomitant]
     Active Substance: VALGANCICLOVIR HYDROCHLORIDE
     Indication: ANTIVIRAL PROPHYLAXIS
     Dosage: 450 MG, QD
     Dates: start: 20170108, end: 20180419
  2. PROGRAF [Concomitant]
     Active Substance: TACROLIMUS\TACROLIMUS ANHYDROUS
     Dosage: 5.5 MG, QD
     Dates: start: 20171118, end: 20171118
  3. TOUJEO [Concomitant]
     Active Substance: INSULIN GLARGINE
     Indication: DIABETES MELLITUS
     Dosage: 14 IU, QD
     Dates: start: 1988
  4. PROGRAF [Concomitant]
     Active Substance: TACROLIMUS\TACROLIMUS ANHYDROUS
     Dosage: 5 MG, QD
     Dates: start: 20171117, end: 20171117
  5. PROGRAF [Concomitant]
     Active Substance: TACROLIMUS\TACROLIMUS ANHYDROUS
     Dosage: 6 MG, QD
     Dates: start: 20171121, end: 20171121
  6. SOLUPRED                           /00016201/ [Concomitant]
     Active Substance: PREDNISOLONE
     Indication: RENAL TRANSPLANT
     Dosage: 7.5 MG, QD
     Dates: start: 20171115
  7. PROGRAF [Concomitant]
     Active Substance: TACROLIMUS\TACROLIMUS ANHYDROUS
     Dosage: 6.5 MG, QD
     Dates: start: 20171119, end: 20171119
  8. PROGRAF [Concomitant]
     Active Substance: TACROLIMUS\TACROLIMUS ANHYDROUS
     Dosage: 5 MG, QD
     Dates: start: 20171122, end: 20171128
  9. PROGRAF [Concomitant]
     Active Substance: TACROLIMUS\TACROLIMUS ANHYDROUS
     Dosage: 6 MG, QD
     Dates: start: 20171219, end: 20180208
  10. LANSOPRAZOLE. [Concomitant]
     Active Substance: LANSOPRAZOLE
     Indication: PROPHYLAXIS
     Dosage: 40 MG, QD
     Dates: start: 20171115
  11. ENVARSUS XR [Suspect]
     Active Substance: TACROLIMUS
     Indication: PROPHYLAXIS AGAINST TRANSPLANT REJECTION
     Dosage: 3 MG, QD
     Route: 048
     Dates: start: 20180320
  12. PROGRAF [Concomitant]
     Active Substance: TACROLIMUS\TACROLIMUS ANHYDROUS
     Indication: RENAL TRANSPLANT
     Dosage: 2.5 MG, QD
     Dates: start: 20171115, end: 20171116
  13. PROGRAF [Concomitant]
     Active Substance: TACROLIMUS\TACROLIMUS ANHYDROUS
     Dosage: 4 MG, QD
     Dates: start: 20171129, end: 20171215
  14. PROGRAF [Concomitant]
     Active Substance: TACROLIMUS\TACROLIMUS ANHYDROUS
     Dosage: 5 MG, QD
     Dates: start: 20171216, end: 20171218
  15. KAYEXALATE [Concomitant]
     Active Substance: SODIUM POLYSTYRENE SULFONATE
     Indication: HYPERKALAEMIA
     Dosage: 15 G, QD
     Dates: start: 20180208
  16. LEDERFOLINE [Concomitant]
     Active Substance: LEUCOVORIN CALCIUM
     Indication: ANAEMIA PROPHYLAXIS
     Dosage: 25 MG PER WEEK
     Dates: start: 20171122, end: 20180405
  17. NOVORAPID [Concomitant]
     Active Substance: INSULIN ASPART
     Indication: DIABETES MELLITUS
     Dosage: 26 IU, QD
     Dates: start: 1988
  18. PROGRAF [Concomitant]
     Active Substance: TACROLIMUS\TACROLIMUS ANHYDROUS
     Dosage: 7 MG, QD
     Dates: start: 20171120, end: 20171120
  19. PROGRAF [Concomitant]
     Active Substance: TACROLIMUS\TACROLIMUS ANHYDROUS
     Dosage: 4 MG, QD
     Dates: start: 20180209, end: 20180319
  20. CELLCEPT [Concomitant]
     Active Substance: MYCOPHENOLATE MOFETIL\MYCOPHENOLATE MOFETIL HYDROCHLORIDE
     Indication: RENAL TRANSPLANT
     Dosage: 1500 MG, QD
     Dates: start: 20171116

REACTIONS (4)
  - Escherichia pyelonephritis [Recovered/Resolved]
  - Tinnitus [Not Recovered/Not Resolved]
  - Bacterial pyelonephritis [Recovered/Resolved]
  - Anaemia [Not Recovered/Not Resolved]

NARRATIVE: CASE EVENT DATE: 20171201
